FAERS Safety Report 4593930-1 (Version None)
Quarter: 2005Q1

REPORT INFORMATION
  Report Type: 
  Country: None (occurrence: None)
  Receive Date: 20050301
  Receipt Date: 20050221
  Transmission Date: 20050727
  Serious: Yes (Disabling, Other)
  Sender: FDA-Public Use
  Company Number: GB-MERCK-0502GBR00190

PATIENT
  Age: 30 Year
  Sex: Female
  Weight: 80 kg

DRUGS (4)
  1. ZOCOR [Suspect]
     Route: 048
  2. ZOCOR [Suspect]
     Route: 048
  3. ZOCOR [Suspect]
     Route: 048
  4. DESOGESTREL [Suspect]
     Route: 065

REACTIONS (3)
  - DRUG INTERACTION [None]
  - GENITAL HAEMORRHAGE [None]
  - VAGINAL HAEMORRHAGE [None]
